FAERS Safety Report 8135712 (Version 3)
Quarter: 2018Q3

REPORT INFORMATION
  Report Type: Spontaneous
  Country: FR (occurrence: FR)
  Receive Date: 20110914
  Receipt Date: 20180914
  Transmission Date: 20181010
  Serious: Yes (Other)
  Sender: FDA-Public Use
  Company Number: FR-SANOFI-AVENTIS-2011SA058059

PATIENT
  Age: 46 Year
  Sex: Female

DRUGS (3)
  1. TAXOTERE [Suspect]
     Active Substance: DOCETAXEL
     Indication: BREAST CANCER
     Dosage: UNK UNK, TOTAL
     Route: 042
     Dates: start: 20110624, end: 20110624
  2. BEVACIZUMAB. [Suspect]
     Active Substance: BEVACIZUMAB
     Dosage: UNK
     Dates: start: 20110617
  3. TAXOTERE [Suspect]
     Active Substance: DOCETAXEL
     Dosage: UNK UNK, TOTAL
     Route: 042
     Dates: start: 20110722, end: 20110722

REACTIONS (2)
  - Periodontal disease [Recovered/Resolved with Sequelae]
  - Mouth ulceration [Unknown]

NARRATIVE: CASE EVENT DATE: 20110725
